FAERS Safety Report 8375677-9 (Version None)
Quarter: 2012Q2

REPORT INFORMATION
  Report Type: 
  Country: None (occurrence: None)
  Receive Date: 20120522
  Receipt Date: 20120517
  Transmission Date: 20120825
  Serious: No
  Sender: FDA-Public Use
  Company Number: US-PFIZER INC-2012121314

PATIENT
  Sex: Female

DRUGS (5)
  1. LYRICA [Suspect]
     Dosage: 300 MG, UNK
  2. XANAX [Suspect]
     Dosage: UNK
  3. NORTRIPTYLINE HCL [Suspect]
     Dosage: UNK
  4. LYRICA [Suspect]
     Dosage: 100 MG, UNK
  5. CYMBALTA [Suspect]
     Dosage: UNK

REACTIONS (1)
  - NEURALGIA [None]
